FAERS Safety Report 9204920 (Version 1)
Quarter: 2013Q2

REPORT INFORMATION
  Report Type: Spontaneous
  Country: JP (occurrence: JP)
  Receive Date: 20130402
  Receipt Date: 20130402
  Transmission Date: 20140414
  Serious: Yes (Hospitalization)
  Sender: FDA-Public Use
  Company Number: JP-OTSUKA-JP-2013-10857

PATIENT
  Age: 58 Year
  Sex: Female

DRUGS (2)
  1. PLETAAL [Suspect]
     Indication: PERIPHERAL ARTERIAL OCCLUSIVE DISEASE
     Dosage: UNK
     Route: 048
  2. PROCYLIN [Concomitant]
     Route: 048

REACTIONS (1)
  - Putamen haemorrhage [Recovering/Resolving]
